FAERS Safety Report 17754252 (Version 2)
Quarter: 2020Q3

REPORT INFORMATION
  Report Type: Report from Study
  Country: US (occurrence: US)
  Receive Date: 20200506
  Receipt Date: 20200721
  Transmission Date: 20201102
  Serious: Yes (Hospitalization)
  Sender: FDA-Public Use
  Company Number: US-ACTELION-A-NJ2015-126223

PATIENT
  Age: 60 Year
  Sex: Male
  Weight: 63.49 kg

DRUGS (10)
  1. VELETRI [Suspect]
     Active Substance: EPOPROSTENOL
     Dosage: 20.17 NG/KG, PER MIN
     Route: 042
  2. VELETRI [Suspect]
     Active Substance: EPOPROSTENOL
     Indication: PULMONARY ARTERIAL HYPERTENSION
     Dosage: 34 NG/KG, PER MIN
     Route: 042
     Dates: start: 20110811
  3. OPSUMIT [Suspect]
     Active Substance: MACITENTAN
     Indication: PULMONARY ARTERIAL HYPERTENSION
     Dosage: 10 MG, QD
     Route: 048
     Dates: start: 20140326
  4. VELETRI [Suspect]
     Active Substance: EPOPROSTENOL
     Dosage: 17.5 NG/KG, PER MIN
     Route: 042
  5. VELETRI [Suspect]
     Active Substance: EPOPROSTENOL
     Dosage: 18.2 NG/KG, PER MIN
     Route: 042
  6. REVATIO [Concomitant]
     Active Substance: SILDENAFIL CITRATE
  7. VELETRI [Suspect]
     Active Substance: EPOPROSTENOL
     Dosage: 20 NG/KG, PER MIN
     Route: 042
  8. VELETRI [Suspect]
     Active Substance: EPOPROSTENOL
     Dosage: 21 NG/KG, PER MIN
     Route: 042
  9. RIOCIGUAT. [Concomitant]
     Active Substance: RIOCIGUAT
     Dosage: UNK
     Dates: end: 20160603
  10. VELETRI [Suspect]
     Active Substance: EPOPROSTENOL
     Dosage: 19.1 NG/KG, PER MIN
     Route: 042

REACTIONS (31)
  - Diarrhoea [Unknown]
  - Palpitations [Unknown]
  - Chest pain [Unknown]
  - Constipation [Unknown]
  - Ulcer [Unknown]
  - Heart rate irregular [Recovered/Resolved]
  - Catheter placement [Unknown]
  - Flushing [Unknown]
  - Nausea [Unknown]
  - Abdominal discomfort [Unknown]
  - Arthropod sting [Recovering/Resolving]
  - Pain in jaw [Unknown]
  - Nasal dryness [Unknown]
  - Cough [Unknown]
  - Toothache [Unknown]
  - Arthralgia [Unknown]
  - Gait disturbance [Unknown]
  - Fall [Unknown]
  - Device dislocation [Unknown]
  - Sleep apnoea syndrome [Unknown]
  - Haematochezia [Unknown]
  - Insomnia [Unknown]
  - Nasopharyngitis [Unknown]
  - Nasal congestion [Unknown]
  - Dyspnoea [Unknown]
  - Unevaluable event [Unknown]
  - Peripheral swelling [Recovering/Resolving]
  - Condition aggravated [Unknown]
  - Headache [Unknown]
  - Dyspnoea exertional [Unknown]
  - Oropharyngeal pain [Unknown]

NARRATIVE: CASE EVENT DATE: 20200423
